FAERS Safety Report 5880336-8 (Version None)
Quarter: 2008Q3

REPORT INFORMATION
  Report Type: 
  Country: None (occurrence: None)
  Receive Date: 20080912
  Receipt Date: 20080830
  Transmission Date: 20090109
  Serious: No
  Sender: FDA-Public Use
  Company Number: US-B.I. PHARMACEUTICALS,INC./RIDGEFIELD-2008-BP-13975BP

PATIENT
  Sex: Female

DRUGS (8)
  1. SPIRIVA [Suspect]
     Indication: EMPHYSEMA
     Dosage: 18MCG
     Route: 055
  2. ADVAIR DISKUS 100/50 [Concomitant]
     Indication: EMPHYSEMA
     Dosage: 1000MG
     Route: 055
     Dates: start: 20030101
  3. METOPROLOL TARTRATE [Concomitant]
     Indication: HYPERTENSION
     Dosage: 50MG
     Route: 048
     Dates: start: 20080501
  4. ALBUTEROL SULFATE [Concomitant]
     Indication: DYSPNOEA
     Dosage: QID PRN
     Route: 055
     Dates: start: 20030101
  5. ALBUTEROL [Concomitant]
     Indication: DYSPNOEA
     Dosage: PRN
     Route: 055
     Dates: start: 20030101
  6. CRESTOR [Concomitant]
     Indication: BLOOD CHOLESTEROL INCREASED
     Dosage: 20MG
     Route: 048
     Dates: start: 20080701
  7. TRAZODONE HCL [Concomitant]
     Indication: SLEEP DISORDER
     Dosage: 50 MG QHS PRN
     Route: 048
     Dates: start: 20070101
  8. OXYGEN [Concomitant]
     Indication: SLEEP APNOEA SYNDROME
     Dosage: 2.5LITERS; INHALATION
     Route: 055
     Dates: start: 20030101

REACTIONS (1)
  - DRUG INEFFECTIVE [None]
